FAERS Safety Report 5144458-1 (Version None)
Quarter: 2006Q4

REPORT INFORMATION
  Report Type: 
  Country: None (occurrence: None)
  Receive Date: 20061031
  Receipt Date: 20061019
  Transmission Date: 20070319
  Serious: Yes (Hospitalization)
  Sender: FDA-Public Use
  Company Number: MEDI-0004620

PATIENT
  Age: 14 Month

DRUGS (1)
  1. SYNAGIS [Suspect]
     Indication: ANTIVIRAL PROPHYLAXIS
     Dosage: 89 MG, 1 IN 30 D, INTRAMUSCULAR
     Route: 030
     Dates: start: 20051011, end: 20051011

REACTIONS (2)
  - CONVULSION [None]
  - HYPERTHERMIA [None]
